FAERS Safety Report 26092852 (Version 1)
Quarter: 2025Q4

REPORT INFORMATION
  Report Type: Report from Study
  Country: US (occurrence: US)
  Receive Date: 20251126
  Receipt Date: 20251126
  Transmission Date: 20260118
  Serious: Yes (Other)
  Sender: ALEXION PHARMACEUTICALS
  Company Number: US-AstraZeneca-CH-00998415A

PATIENT
  Sex: Female

DRUGS (1)
  1. CAPIVASERTIB [Suspect]
     Active Substance: CAPIVASERTIB
     Indication: Breast cancer female
     Dosage: 200 MILLIGRAM, BID
     Dates: start: 202510

REACTIONS (7)
  - Nephrolithiasis [Unknown]
  - Lipids increased [Unknown]
  - Inflammation [Unknown]
  - Serum ferritin increased [Unknown]
  - Stress [Unknown]
  - Thyroid disorder [Unknown]
  - Fibrin D dimer increased [Unknown]
